FAERS Safety Report 12185453 (Version 2)
Quarter: 2016Q2

REPORT INFORMATION
  Report Type: Report from Study
  Country: JP (occurrence: JP)
  Receive Date: 20160316
  Receipt Date: 20160520
  Transmission Date: 20160815
  Serious: Yes (Hospitalization, Other)
  Sender: FDA-Public Use
  Company Number: PHJP2015JP018179

PATIENT
  Age: 75 Year
  Sex: Male
  Weight: 33 kg

DRUGS (14)
  1. AFINITOR [Suspect]
     Active Substance: EVEROLIMUS
     Dosage: 10 MG, QD
     Route: 048
     Dates: start: 20130723, end: 20131002
  2. CELECOX [Concomitant]
     Active Substance: CELECOXIB
     Indication: PANCREATIC NEUROENDOCRINE TUMOUR
     Dosage: 400 MG, UNK
     Route: 048
  3. DEPAS [Concomitant]
     Active Substance: ETIZOLAM
     Indication: PANCREATIC NEUROENDOCRINE TUMOUR
     Dosage: 0.5 MG, UNK
     Route: 048
  4. MYONAL [Concomitant]
     Active Substance: EPERISONE HYDROCHLORIDE
     Indication: PANCREATIC NEUROENDOCRINE TUMOUR
     Dosage: 150 MG, UNK
     Route: 048
  5. TRAMAL [Concomitant]
     Active Substance: TRAMADOL
     Indication: PANCREATIC NEUROENDOCRINE TUMOUR
     Dosage: 75 MG, UNK
     Route: 048
     Dates: start: 20130315
  6. TRAMAL [Concomitant]
     Active Substance: TRAMADOL
     Dosage: 150 MG, UNK
     Route: 048
  7. AFINITOR [Suspect]
     Active Substance: EVEROLIMUS
     Indication: PANCREATIC NEUROENDOCRINE TUMOUR
     Dosage: 5 MG, QD
     Route: 048
     Dates: start: 20120911, end: 20130722
  8. LENDORMIN [Concomitant]
     Active Substance: BROTIZOLAM
     Indication: PANCREATIC NEUROENDOCRINE TUMOUR
     Dosage: 0.25 MG, UNK
     Route: 048
  9. DUROTEP [Concomitant]
     Active Substance: FENTANYL
     Indication: PANCREATIC NEUROENDOCRINE TUMOUR
     Dosage: 4.2 MG, UNK
     Route: 061
  10. FERROMIA [Concomitant]
     Active Substance: FERROUS CITRATE
     Indication: PANCREATIC NEUROENDOCRINE TUMOUR
     Dosage: 50 MG, UNK
     Route: 048
     Dates: start: 20121016, end: 20121112
  11. TAKEPRON [Concomitant]
     Active Substance: LANSOPRAZOLE
     Indication: PANCREATIC NEUROENDOCRINE TUMOUR
     Dosage: 15 MG, UNK
     Route: 048
  12. MAGLAX [Concomitant]
     Active Substance: MAGNESIUM OXIDE
     Indication: PANCREATIC NEUROENDOCRINE TUMOUR
     Dosage: 1500 MG, UNK
     Route: 048
  13. ALFAROL [Concomitant]
     Active Substance: ALFACALCIDOL
     Indication: PANCREATIC NEUROENDOCRINE TUMOUR
     Dosage: 0.5 UG, UNK
     Route: 048
  14. DUROTEP [Concomitant]
     Active Substance: FENTANYL
     Dosage: 6.3 MG, UNK
     Route: 061

REACTIONS (13)
  - Pyrexia [Unknown]
  - General physical health deterioration [Unknown]
  - Urinary tract infection [Recovered/Resolved]
  - Venous stenosis [Unknown]
  - Sepsis [Unknown]
  - Hepatic cyst [Unknown]
  - Pneumonia pseudomonal [Unknown]
  - Calculus bladder [Unknown]
  - White blood cell count decreased [Unknown]
  - Eosinophil percentage increased [Unknown]
  - Lymphocyte percentage decreased [Unknown]
  - Pneumonia [Recovered/Resolved]
  - Osteolysis [Unknown]

NARRATIVE: CASE EVENT DATE: 20120928
